FAERS Safety Report 5211950-0 (Version None)
Quarter: 2007Q1

REPORT INFORMATION
  Report Type: 
  Country: None (occurrence: None)
  Receive Date: 20070118
  Receipt Date: 20070109
  Transmission Date: 20070707
  Serious: Yes (Hospitalization)
  Sender: FDA-Public Use
  Company Number: GB-AVENTIS-200710218EU

PATIENT
  Age: 81 Year
  Sex: Male

DRUGS (8)
  1. FUROSEMIDE [Suspect]
     Route: 048
  2. FUROSEMIDE [Suspect]
     Dosage: DOSE: DECREASED DOSAGE
     Route: 048
  3. LISINOPRIL [Suspect]
     Indication: HYPERTENSION
     Route: 048
  4. SPIRONOLACTONE [Suspect]
     Route: 048
     Dates: end: 20061221
  5. AMIODARONE HCL [Concomitant]
     Route: 048
  6. BISACODYL [Concomitant]
     Indication: CONSTIPATION
     Route: 048
  7. BISOPROLOL FUMARATE [Concomitant]
     Route: 048
  8. CODEINE                            /00012602/ [Concomitant]
     Route: 048

REACTIONS (1)
  - RENAL FAILURE ACUTE [None]
